FAERS Safety Report 5745251-9 (Version None)
Quarter: 2008Q2

REPORT INFORMATION
  Report Type: 
  Country: None (occurrence: None)
  Receive Date: 20080521
  Receipt Date: 20080519
  Transmission Date: 20081010
  Serious: Yes (Hospitalization)
  Sender: FDA-Public Use
  Company Number: B0521411A

PATIENT
  Age: 40 Year
  Sex: Female

DRUGS (1)
  1. LAMICTAL [Suspect]
     Indication: EPILEPSY
     Dosage: 300MG PER DAY
     Route: 048

REACTIONS (5)
  - DRUG EXPOSURE DURING PREGNANCY [None]
  - HAEMOLYTIC ANAEMIA [None]
  - HELLP SYNDROME [None]
  - STILLBIRTH [None]
  - THROMBOCYTOPENIA [None]
